FAERS Safety Report 23375849 (Version 3)
Quarter: 2024Q3

REPORT INFORMATION
  Report Type: Spontaneous
  Country: ES (occurrence: ES)
  Receive Date: 20240108
  Receipt Date: 20240919
  Transmission Date: 20241017
  Serious: Yes (Life-Threatening, Hospitalization, Other)
  Sender: AUROBINDO
  Company Number: ES-MLMSERVICE-20231222-4739969-1

PATIENT
  Age: 59 Year
  Sex: Female

DRUGS (3)
  1. OXALIPLATIN [Suspect]
     Active Substance: OXALIPLATIN
     Indication: Rectal cancer stage IV
     Dosage: 0.05 MILLIGRAM PER MILLILITRE
     Route: 062
  2. OXALIPLATIN [Suspect]
     Active Substance: OXALIPLATIN
     Dosage: 0.5 MILLIGRAM PER MILLILITRE
     Route: 062
  3. OXALIPLATIN [Suspect]
     Active Substance: OXALIPLATIN
     Dosage: 5 MILLIGRAM PER MILLILITRE
     Route: 062

REACTIONS (2)
  - Kounis syndrome [Unknown]
  - Anaphylactic reaction [Unknown]
